FAERS Safety Report 10977551 (Version 1)
Quarter: 2015Q2

REPORT INFORMATION
  Report Type: Other
  Country: GB (occurrence: GB)
  Receive Date: 20150402
  Receipt Date: 20150402
  Transmission Date: 20150821
  Serious: Yes (Life-Threatening, Other)
  Sender: FDA-Public Use
  Company Number: GB-SUN PHARMACEUTICAL INDUSTRIES LTD-2015SUN00855

PATIENT
  Age: 52 Year
  Sex: Female
  Weight: 59 kg

DRUGS (6)
  1. CARBOPLATIN 10 MG/ML CONCENTRATE FOR SOLUTION FOR INFUSION [Suspect]
     Active Substance: CARBOPLATIN
     Indication: CERVIX CARCINOMA
     Dosage: 600 MG, ONE DOSE IN THREE WEEKS
     Route: 042
     Dates: start: 20150116
  2. AVASTIN [Suspect]
     Active Substance: BEVACIZUMAB
     Indication: CERVIX CARCINOMA
     Dosage: 1100 MG, ONE DOSE IN THREE WEEKS
     Route: 042
     Dates: start: 20150116
  3. FRAGMIN [Suspect]
     Active Substance: DALTEPARIN SODIUM
     Indication: DEEP VEIN THROMBOSIS
     Dosage: 15000 (UNIT NOT REPORTED) DAILY
     Route: 058
     Dates: start: 20150101
  4. TANOL [Suspect]
     Active Substance: CALAMINE\DIPHENHYDRAMINE HYDROCHLORIDE\MENTHOL\ZINC OXIDE
     Indication: CERVIX CARCINOMA
     Dosage: DOSE 312 (UNIT NOT REPORTED) ONCE IN THREE WEEKS
     Route: 042
     Dates: start: 20150116
  5. ONDANSETRON [Concomitant]
     Active Substance: ONDANSETRON
     Indication: PROPHYLAXIS
  6. DOMPERIDONE [Concomitant]
     Active Substance: DOMPERIDONE
     Indication: PROPHYLAXIS

REACTIONS (3)
  - Vaginal haemorrhage [Recovered/Resolved]
  - Malaise [Unknown]
  - Haemoglobin decreased [None]

NARRATIVE: CASE EVENT DATE: 20150117
